FAERS Safety Report 23659630 (Version 1)
Quarter: 2024Q1

REPORT INFORMATION
  Report Type: Spontaneous
  Country: US (occurrence: US)
  Receive Date: 20240321
  Receipt Date: 20240321
  Transmission Date: 20240410
  Serious: Yes (Death, Hospitalization, Other)
  Sender: FDA-Public Use
  Company Number: US-BRISTOL-MYERS SQUIBB COMPANY-2024-042586

PATIENT
  Sex: Male
  Weight: 65.77 kg

DRUGS (3)
  1. AUGTYRO [Suspect]
     Active Substance: REPOTRECTINIB
     Indication: Lung carcinoma cell type unspecified stage 0
     Dosage: FREQUENCY: PRESCRIPTION SENT TO THERACOM 01-MAR-2024, 4 X 40MG CAPSULES TWICE DAILY. HOWEVER, REPORT
     Route: 048
  2. PEMBROLIZUMAB [Concomitant]
     Active Substance: PEMBROLIZUMAB
     Indication: Product used for unknown indication
  3. ENTRECTINIB [Concomitant]
     Active Substance: ENTRECTINIB
     Indication: Product used for unknown indication

REACTIONS (2)
  - Thrombosis [Fatal]
  - Urinary tract infection [Fatal]
